FAERS Safety Report 7576923-1 (Version None)
Quarter: 2011Q2

REPORT INFORMATION
  Report Type: 
  Country: None (occurrence: None)
  Receive Date: 20110628
  Receipt Date: 20110621
  Transmission Date: 20111010
  Serious: Yes (Other)
  Sender: FDA-Public Use
  Company Number: US-JNJFOC-20100504868

PATIENT
  Sex: Male

DRUGS (3)
  1. CORTICOSTEROIDS [Suspect]
     Indication: ILL-DEFINED DISORDER
  2. CIPROFLOXACIN HCL [Suspect]
     Indication: PREOPERATIVE CARE
  3. LEVAQUIN [Suspect]
     Indication: RESPIRATORY TRACT INFECTION
     Route: 048
     Dates: start: 20080311, end: 20080321

REACTIONS (3)
  - TRIGGER FINGER [None]
  - TENDON RUPTURE [None]
  - TENDON DISORDER [None]
